FAERS Safety Report 5862459-2 (Version None)
Quarter: 2008Q3

REPORT INFORMATION
  Report Type: 
  Country: None (occurrence: None)
  Receive Date: 20080828
  Receipt Date: 20080818
  Transmission Date: 20090109
  Serious: Yes (Other)
  Sender: FDA-Public Use
  Company Number: US-ELI_LILLY_AND_COMPANY-US200808003852

PATIENT
  Age: 80 Year
  Sex: Female

DRUGS (9)
  1. EVISTA [Suspect]
     Dates: start: 20040101, end: 20080601
  2. ASPIRIN [Concomitant]
     Dosage: 81 MG, UNK
     Route: 048
  3. ATIVAN [Concomitant]
     Dosage: 0.5 MG, UNK
     Route: 048
  4. AZOPT [Concomitant]
     Route: 048
  5. CALCIUM CARBONATE + VITAMIN D [Concomitant]
     Dosage: 200 MG, UNK
     Route: 048
  6. CENTRUM SILVER [Concomitant]
     Route: 048
  7. METOPROLOL SUCCINATE [Concomitant]
     Dosage: 50 MG, UNK
     Route: 048
  8. TRAVATAN [Concomitant]
     Dosage: 0.004 UNK, UNK
     Route: 001
  9. DEPO-MEDROL [Concomitant]
     Dates: start: 20080511

REACTIONS (10)
  - ABDOMINAL HERNIA [None]
  - ATRIAL FIBRILLATION [None]
  - CARDIOMEGALY [None]
  - EXTRASYSTOLES [None]
  - GASTROOESOPHAGEAL REFLUX DISEASE [None]
  - HIP FRACTURE [None]
  - HYPERTENSION [None]
  - INCISIONAL HERNIA [None]
  - PALPITATIONS [None]
  - PELVIC FRACTURE [None]
